FAERS Safety Report 24560363 (Version 1)
Quarter: 2024Q4

REPORT INFORMATION
  Report Type: Spontaneous
  Country: US (occurrence: US)
  Receive Date: 20241029
  Receipt Date: 20241029
  Transmission Date: 20250115
  Serious: No
  Sender: ABBVIE
  Company Number: US-ABBVIE-5975214

PATIENT
  Sex: Male

DRUGS (1)
  1. RINVOQ [Suspect]
     Active Substance: UPADACITINIB
     Indication: Dermatitis atopic
     Dosage: FROM STRENGTH: 15 MG. LAST ADMIN DATE 2024
     Route: 048
     Dates: start: 202407

REACTIONS (7)
  - Flank pain [Unknown]
  - Myalgia [Unknown]
  - Headache [Unknown]
  - Acne [Unknown]
  - Hordeolum [Unknown]
  - Arthralgia [Unknown]
  - Folliculitis [Unknown]

NARRATIVE: CASE EVENT DATE: 20240101
